FAERS Safety Report 6743969-2 (Version None)
Quarter: 2010Q2

REPORT INFORMATION
  Report Type: 
  Country: None (occurrence: None)
  Receive Date: 20100527
  Receipt Date: 20100524
  Transmission Date: 20101027
  Serious: Yes (Death)
  Sender: FDA-Public Use
  Company Number: PHHY2010IE14355

PATIENT
  Sex: Female

DRUGS (7)
  1. CLOZARIL [Suspect]
     Indication: DEMENTIA
     Dosage: UNK
     Dates: start: 20070618
  2. CLOZARIL [Suspect]
     Dosage: 200 MG, QD
     Dates: end: 20100201
  3. SINEMET CR [Concomitant]
     Indication: PARKINSONISM
     Dosage: 6 TABLETS DAILY
     Route: 048
     Dates: start: 20060101
  4. SINEMET CR [Concomitant]
     Indication: PARKINSONISM
     Dosage: 1 TABLET DAILY
     Route: 048
     Dates: start: 20060101
  5. EFFEXOR [Concomitant]
     Indication: DEPRESSION
     Dosage: 225MG/DAY
     Route: 048
     Dates: start: 20060101
  6. LORAZEPAM [Concomitant]
     Dosage: 4MG
     Route: 048
     Dates: start: 20060101
  7. ZOTON [Concomitant]
     Indication: GASTRITIS
     Dosage: 30MG DAILY
     Route: 048
     Dates: start: 20060101

REACTIONS (3)
  - DEMENTIA [None]
  - NO THERAPEUTIC RESPONSE [None]
  - PARKINSON'S DISEASE [None]
